FAERS Safety Report 19284811 (Version 1)
Quarter: 2021Q2

REPORT INFORMATION
  Report Type: Spontaneous
  Country: SE (occurrence: SE)
  Receive Date: 20210521
  Receipt Date: 20210521
  Transmission Date: 20210717
  Serious: Yes (Disabling)
  Sender: FDA-Public Use
  Company Number: SE-TEVA-2021-SE-1912723

PATIENT
  Age: 85 Year
  Sex: Female

DRUGS (1)
  1. ALENDRONAT [Suspect]
     Active Substance: ALENDRONATE SODIUM
     Indication: OSTEOPOROSIS
     Dosage: 70MILLIGRAM
     Dates: start: 201907, end: 202101

REACTIONS (15)
  - Sensation of foreign body [Recovering/Resolving]
  - Malaise [Unknown]
  - Mouth ulceration [Recovering/Resolving]
  - Feeding disorder [Recovered/Resolved with Sequelae]
  - Lacrimation disorder [Recovered/Resolved with Sequelae]
  - Dysphagia [Recovering/Resolving]
  - Eyelids pruritus [Recovered/Resolved with Sequelae]
  - Eye pain [Unknown]
  - Weight decreased [Recovered/Resolved with Sequelae]
  - Odynophagia [Recovering/Resolving]
  - Epistaxis [Unknown]
  - Erythema [Recovering/Resolving]
  - Eyelid oedema [Recovered/Resolved with Sequelae]
  - Pharyngeal ulceration [Unknown]
  - Chemical burn of skin [Unknown]

NARRATIVE: CASE EVENT DATE: 20201225
